FAERS Safety Report 9800986 (Version 1)
Quarter: 2014Q1

REPORT INFORMATION
  Report Type: Spontaneous
  Country: FR (occurrence: FR)
  Receive Date: 20140107
  Receipt Date: 20140107
  Transmission Date: 20141002
  Serious: Yes (Hospitalization)
  Sender: FDA-Public Use
  Company Number: FR-SA-2013SA136327

PATIENT
  Age: 56 Year
  Sex: Male

DRUGS (6)
  1. DAONIL [Suspect]
     Indication: TYPE 2 DIABETES MELLITUS
     Route: 048
     Dates: end: 20131014
  2. XELEVIA [Suspect]
     Indication: TYPE 2 DIABETES MELLITUS
     Route: 048
     Dates: end: 20131012
  3. KARDEGIC [Concomitant]
  4. METFORMIN [Concomitant]
  5. PERINDOPRIL [Concomitant]
  6. TAHOR [Concomitant]

REACTIONS (2)
  - Pancreatitis acute [Recovered/Resolved]
  - Back pain [Recovered/Resolved]
